FAERS Safety Report 5423683-6 (Version None)
Quarter: 2007Q3

REPORT INFORMATION
  Report Type: 
  Country: None (occurrence: None)
  Receive Date: 20070823
  Receipt Date: 20070821
  Transmission Date: 20080115
  Serious: Yes (Hospitalization)
  Sender: FDA-Public Use
  Company Number: B0483925A

PATIENT
  Age: 75 Year
  Sex: Male
  Weight: 48 kg

DRUGS (4)
  1. DERMOVATE [Suspect]
     Indication: PSORIASIS
     Route: 061
     Dates: start: 19970101, end: 20070416
  2. PROPADERM [Suspect]
     Indication: PSORIASIS
     Route: 061
     Dates: start: 19970101, end: 20070416
  3. DERMOVATE [Concomitant]
     Route: 061
     Dates: start: 19970101
  4. UNKNOWN NAME [Concomitant]
     Indication: PSORIASIS
     Route: 061
     Dates: start: 19970101

REACTIONS (1)
  - ADRENOCORTICAL INSUFFICIENCY ACUTE [None]
